FAERS Safety Report 13484817 (Version 13)
Quarter: 2018Q2

REPORT INFORMATION
  Report Type: Spontaneous
  Country: US (occurrence: US)
  Receive Date: 20170426
  Receipt Date: 20180607
  Transmission Date: 20180711
  Serious: No
  Sender: FDA-Public Use
  Company Number: US-PFIZER INC-2017179222

PATIENT
  Age: 59 Year
  Sex: Female
  Weight: 89 kg

DRUGS (9)
  1. IBRANCE [Suspect]
     Active Substance: PALBOCICLIB
     Dosage: 125 MG, CYCLIC (1 DAILY X 21/28 DAYS)
     Route: 048
     Dates: start: 201704
  2. IBRANCE [Suspect]
     Active Substance: PALBOCICLIB
     Dosage: 125 MG, CYCLIC (1 DAILY X 21/28 DAYS)
     Route: 048
  3. IBRANCE [Suspect]
     Active Substance: PALBOCICLIB
     Dosage: 100 MG, CYCLIC (DAYS 1-21 Q28 DAYS)
     Route: 048
  4. IBRANCE [Suspect]
     Active Substance: PALBOCICLIB
     Dosage: 100 MG, CYCLIC (DAYS 1-21 Q28 DAYS)
     Route: 048
  5. IBRANCE [Suspect]
     Active Substance: PALBOCICLIB
     Dosage: 100 MG, CYCLIC, (DAILY 21/28 DAYS)
     Route: 048
     Dates: start: 201709
  6. IBRANCE [Suspect]
     Active Substance: PALBOCICLIB
     Indication: BREAST CANCER METASTATIC
     Dosage: 125 MG, CYCLIC, (DAILY X 21 DAYS/ 7 OFF)
     Route: 048
     Dates: start: 20170408
  7. IBRANCE [Suspect]
     Active Substance: PALBOCICLIB
     Dosage: 125 MG, CYCLIC (DAILY DAY 1-21 Q 28 DAYS)
     Route: 048
  8. IBRANCE [Suspect]
     Active Substance: PALBOCICLIB
     Dosage: 125 MG, CYCLIC (DAYS 1-21 Q 28 DAYS)
     Route: 048
     Dates: end: 201709
  9. IBRANCE [Suspect]
     Active Substance: PALBOCICLIB
     Dosage: 125 MG, CYCLIC (DAILY DAY 1-21 Q 28 DAYS)
     Route: 048

REACTIONS (15)
  - Nasopharyngitis [Unknown]
  - Chest discomfort [Unknown]
  - Alopecia [Recovering/Resolving]
  - Chest pain [Unknown]
  - Bronchitis [Unknown]
  - Neoplasm progression [Unknown]
  - Dyspnoea [Unknown]
  - Paraesthesia [Unknown]
  - Abnormal behaviour [Unknown]
  - Somnolence [Recovering/Resolving]
  - Acne [Unknown]
  - Painful respiration [Unknown]
  - Dizziness [Unknown]
  - White blood cell count decreased [Unknown]
  - Hypoaesthesia [Unknown]

NARRATIVE: CASE EVENT DATE: 2017
